FAERS Safety Report 4646359-1 (Version None)
Quarter: 2005Q2

REPORT INFORMATION
  Report Type: 
  Country: None (occurrence: None)
  Receive Date: 20050422
  Receipt Date: 20050411
  Transmission Date: 20051028
  Serious: Yes (Hospitalization)
  Sender: FDA-Public Use
  Company Number: 05P-028-0297322-00

PATIENT
  Age: 66 Year
  Sex: Female

DRUGS (9)
  1. HUMIRA [Suspect]
     Indication: RHEUMATOID ARTHRITIS
     Dosage: 40 MG, 1 IN 2 WK, SUBCUTANEOUS
     Route: 058
     Dates: start: 20050124
  2. ARTHROTEC [Concomitant]
  3. METHOTREXATE [Concomitant]
  4. FOLIC ACID [Concomitant]
  5. TOCOPHEROL CONCENTRATE CAP [Concomitant]
  6. ASCORBIC ACID [Concomitant]
  7. BECOSYM FORTE [Concomitant]
  8. RISEDRONATE SODIUM [Concomitant]
  9. ACETAMINOPHEN [Concomitant]

REACTIONS (1)
  - FOOT OPERATION [None]
